FAERS Safety Report 17714495 (Version 1)
Quarter: 2020Q2

REPORT INFORMATION
  Report Type: Report from Study
  Country: US (occurrence: US)
  Receive Date: 20200427
  Receipt Date: 20200427
  Transmission Date: 20200714
  Serious: Yes (Other)
  Sender: FDA-Public Use
  Company Number: NVSC2020US110371

PATIENT
  Sex: Male

DRUGS (1)
  1. ENTRESTO [Suspect]
     Active Substance: SACUBITRIL\VALSARTAN
     Indication: CARDIAC FAILURE
     Dosage: 0.5 DF (24/26 MG), BID
     Route: 065

REACTIONS (5)
  - Blood pressure decreased [Unknown]
  - Cerebrovascular accident [Unknown]
  - Wrong technique in product usage process [Unknown]
  - Underdose [Unknown]
  - Hemiplegia [Unknown]
